FAERS Safety Report 5471017-3 (Version None)
Quarter: 2007Q3

REPORT INFORMATION
  Report Type: 
  Country: None (occurrence: None)
  Receive Date: 20070928
  Receipt Date: 20070927
  Transmission Date: 20080115
  Serious: Yes (Hospitalization)
  Sender: FDA-Public Use
  Company Number: B0484951A

PATIENT
  Sex: Male

DRUGS (2)
  1. GW572016 [Suspect]
     Indication: GASTRIC CANCER
     Dosage: 1500MG PER DAY
     Route: 048
     Dates: start: 20070712
  2. PACLITAXEL [Suspect]
     Indication: GASTRIC CANCER
     Dosage: 80MGM2 PER DAY
     Route: 042
     Dates: start: 20070711

REACTIONS (2)
  - DIARRHOEA [None]
  - HYPOALBUMINAEMIA [None]
